FAERS Safety Report 15961953 (Version 1)
Quarter: 2019Q1

REPORT INFORMATION
  Report Type: Spontaneous
  Country: JP (occurrence: JP)
  Receive Date: 20190214
  Receipt Date: 20190214
  Transmission Date: 20190417
  Serious: Yes (Hospitalization)
  Sender: FDA-Public Use
  Company Number: JP-TEVA-2019-JP-1010514

PATIENT
  Age: 29 Year
  Sex: Female

DRUGS (7)
  1. WARFARIN [Suspect]
     Active Substance: WARFARIN
     Indication: PROSTHETIC CARDIAC VALVE THROMBOSIS
  2. HEPARIN [Suspect]
     Active Substance: HEPARIN SODIUM
     Indication: PROSTHETIC CARDIAC VALVE THROMBOSIS
  3. HEPARIN [Suspect]
     Active Substance: HEPARIN SODIUM
     Indication: ANTICOAGULANT THERAPY
     Dosage: INITIAL DOSES NOT STATED; LATER GIVEN 15TIMES10E3 IU/DAY DURING DELIVERY
     Route: 050
  4. ANTITHROMBIN-III [Suspect]
     Active Substance: ANTITHROMBIN III HUMAN
     Dosage: KEPT AT }80%
     Route: 065
  5. ALTEPLASE. [Suspect]
     Active Substance: ALTEPLASE
     Indication: PROSTHETIC CARDIAC VALVE THROMBOSIS
     Dosage: SIX-HOURS INFUSION OF 15TIMES10 6 IU (ABOUT 26 MG)
     Route: 041
  6. WARFARIN [Suspect]
     Active Substance: WARFARIN
     Indication: ANTICOAGULANT THERAPY
     Route: 065
  7. ALTEPLASE. [Suspect]
     Active Substance: ALTEPLASE
     Indication: THROMBOLYSIS
     Dosage: 25 TIMES10 5 IU/H, ADMINISTERED VIA DRIP
     Route: 041

REACTIONS (5)
  - Abdominal wall haematoma [Recovered/Resolved]
  - Arterial haemorrhage [Recovered/Resolved]
  - Maternal exposure during pregnancy [Unknown]
  - Live birth [Unknown]
  - Condition aggravated [Recovered/Resolved]
